FAERS Safety Report 4749177-9 (Version None)
Quarter: 2005Q3

REPORT INFORMATION
  Report Type: 
  Country: None (occurrence: None)
  Receive Date: 20050817
  Receipt Date: 20050809
  Transmission Date: 20060218
  Serious: Yes (Hospitalization)
  Sender: FDA-Public Use
  Company Number: 200512371GDS

PATIENT
  Age: 80 Year
  Sex: Female

DRUGS (13)
  1. ASPIRIN [Suspect]
     Dosage: 100 MG, TOTAL DAILY, ORAL
     Route: 048
     Dates: end: 20050606
  2. ASPIRIN [Suspect]
     Dosage: 100 MG, TOTAL DAILY, ORAL
     Route: 048
     Dates: start: 20050606, end: 20050622
  3. CITALOPRAM HYDROBROMIDE [Suspect]
     Dosage: 20 MG, TOTAL DAILY, ORAL
     Route: 048
  4. SINTROM [Suspect]
     Dosage: PRN, ORAL
     Route: 048
     Dates: end: 20050606
  5. SINTROM [Suspect]
     Dosage: PRN, ORAL
     Route: 048
     Dates: start: 20050606, end: 20050622
  6. RENITEN [Concomitant]
  7. BELOC [Concomitant]
  8. TORSEMIDE [Concomitant]
  9. PANTOZOL [Concomitant]
  10. SORTIS [Concomitant]
  11. NEO-MERCAZOLE TAB [Concomitant]
  12. LEXOTANIL [Concomitant]
  13. ZOCOR [Concomitant]

REACTIONS (6)
  - ACTIVATED PARTIAL THROMBOPLASTIN TIME PROLONGED [None]
  - ANAEMIA [None]
  - BLOOD PRESSURE SYSTOLIC INCREASED [None]
  - EPISTAXIS [None]
  - INTERNATIONAL NORMALISED RATIO INCREASED [None]
  - PROTHROMBIN TIME PROLONGED [None]
